FAERS Safety Report 6501453-5 (Version None)
Quarter: 2009Q4

REPORT INFORMATION
  Report Type: 
  Country: None (occurrence: None)
  Receive Date: 20091216
  Receipt Date: 20091204
  Transmission Date: 20100525
  Serious: Yes (Other)
  Sender: FDA-Public Use
  Company Number: GB-JNJFOC-20091204426

PATIENT
  Age: 82 Year
  Sex: Male

DRUGS (4)
  1. RISPERIDONE [Suspect]
     Indication: AGITATION
     Route: 065
  2. LORAZEPAM [Concomitant]
     Dosage: 0.5 TO 1 MG
  3. RIVASTIGMINE [Concomitant]
     Route: 065
  4. MEMANTINE [Concomitant]
     Route: 065

REACTIONS (3)
  - EATING DISORDER [None]
  - HALLUCINATION [None]
  - MALAISE [None]
